FAERS Safety Report 24818446 (Version 1)
Quarter: 2025Q1

REPORT INFORMATION
  Report Type: Spontaneous
  Country: US (occurrence: None)
  Receive Date: 20250107
  Receipt Date: 20250107
  Transmission Date: 20250409
  Serious: Yes (Death)
  Sender: FDA-CTU
  Company Number: None

PATIENT
  Age: 55 Year
  Sex: Male

DRUGS (7)
  1. PROCHLORPERAZINE [Suspect]
     Active Substance: PROCHLORPERAZINE
  2. KCL [Suspect]
     Active Substance: POTASSIUM CHLORIDE
  3. URSODIOL [Suspect]
     Active Substance: URSODIOL
  4. ACYCLOVIR [Suspect]
     Active Substance: ACYCLOVIR
  5. ZOFRAN [Suspect]
     Active Substance: ONDANSETRON HYDROCHLORIDE
  6. DESCOVY [Suspect]
     Active Substance: EMTRICITABINE\TENOFOVIR ALAFENAMIDE FUMARATE
  7. FLUCONAZOLE [Suspect]
     Active Substance: FLUCONAZOLE

REACTIONS (1)
  - Fungal infection [None]

NARRATIVE: CASE EVENT DATE: 20241207
